FAERS Safety Report 7099394-0 (Version None)
Quarter: 2010Q4

REPORT INFORMATION
  Report Type: 
  Country: None (occurrence: None)
  Receive Date: 20101112
  Receipt Date: 20101105
  Transmission Date: 20110411
  Serious: Yes (Other)
  Sender: FDA-Public Use
  Company Number: US-JNJCH-2010025711

PATIENT
  Sex: Female

DRUGS (1)
  1. LISTERINE ZERO MOUTHWASH CLEAN MINT [Suspect]
     Indication: PRODUCT USED FOR UNKNOWN INDICATION
     Dosage: TEXT:UNKNOWN
     Route: 048
     Dates: start: 20101105, end: 20101105

REACTIONS (4)
  - BURNING SENSATION [None]
  - ORAL DISORDER [None]
  - ORAL MUCOSAL EXFOLIATION [None]
  - STOMATITIS [None]
